FAERS Safety Report 4886675-1 (Version None)
Quarter: 2006Q1

REPORT INFORMATION
  Report Type: 
  Country: None (occurrence: None)
  Receive Date: 20060120
  Receipt Date: 20060111
  Transmission Date: 20060701
  Serious: Yes (Other)
  Sender: FDA-Public Use
  Company Number: PHEH2006US00833

PATIENT
  Age: 59 Year
  Sex: Female

DRUGS (9)
  1. ZOMETA [Suspect]
     Indication: METASTASES TO BONE
     Dosage: 4 MG, Q5W
     Dates: start: 20040416, end: 20051208
  2. FOSAMAX [Concomitant]
     Indication: OSTEOPOROSIS
     Dosage: UNK UKN, UNK
     Dates: end: 20040507
  3. XELODA [Concomitant]
     Dosage: UNK UKN, UNK
     Dates: start: 20040401, end: 20050201
  4. XELODA [Concomitant]
     Dosage: UNK UKN, UNK
  5. AVASTIN [Concomitant]
     Dosage: UNK, UNK
     Dates: start: 20051001
  6. TAXOTERE [Concomitant]
     Dosage: UNK, UNK
     Dates: start: 20051001
  7. NAVELBINE [Concomitant]
     Dosage: UNK, UNK
     Dates: start: 20050323, end: 20050901
  8. CARBOPLATIN [Concomitant]
     Dosage: UNK, UNK
     Dates: start: 20051001
  9. GEMZAR [Concomitant]
     Dosage: UNK, UNK
     Dates: start: 20050323, end: 20050901

REACTIONS (2)
  - OSTEONECROSIS [None]
  - PAIN IN JAW [None]
